FAERS Safety Report 4475917-2 (Version None)
Quarter: 2004Q4

REPORT INFORMATION
  Report Type: 
  Country: None (occurrence: None)
  Receive Date: 20041012
  Receipt Date: 20040929
  Transmission Date: 20050328
  Serious: Yes (Hospitalization)
  Sender: FDA-Public Use
  Company Number: CIP04002131

PATIENT
  Age: 76 Year
  Sex: Female

DRUGS (5)
  1. FURADANTINE(NITROFURANTOIN, MACROCRYSTALS) CAPSULE [Suspect]
     Indication: URINARY TRACT INFECTION
     Dosage: 3 CAPSULES IN ONE DAY, ORAL
     Route: 048
     Dates: start: 20040819, end: 20040829
  2. SECTRAL ^AKITA^ [Concomitant]
  3. INDAPAMIDE [Concomitant]
  4. . [Concomitant]
  5. . [Concomitant]

REACTIONS (16)
  - ALANINE AMINOTRANSFERASE INCREASED [None]
  - ASPARTATE AMINOTRANSFERASE INCREASED [None]
  - BLOOD CREATINE PHOSPHOKINASE INCREASED [None]
  - BLOOD POTASSIUM DECREASED [None]
  - BLOOD SODIUM DECREASED [None]
  - BLOOD UREA INCREASED [None]
  - BRAIN SCAN ABNORMAL [None]
  - COGNITIVE DISORDER [None]
  - CONTUSION [None]
  - DEHYDRATION [None]
  - FALL [None]
  - LOSS OF CONSCIOUSNESS [None]
  - NECK PAIN [None]
  - NODULE [None]
  - VOMITING [None]
  - WOUND [None]
